FAERS Safety Report 8991022 (Version 1)
Quarter: 2012Q4

REPORT INFORMATION
  Report Type: 
  Country: US (occurrence: None)
  Receive Date: 20121227
  Receipt Date: 20121227
  Transmission Date: 20130627
  Serious: Yes (Hospitalization)
  Sender: FDA-Public Use
  Company Number: None

PATIENT
  Sex: Male
  Weight: 98.1 kg

DRUGS (3)
  1. MERCAPTOPURINE [Suspect]
  2. METHOTREXATE [Suspect]
     Dosage: IT MTX 15 MG, MTX 55 MG
     Route: 048
  3. VINCRISTINE SULFATE [Suspect]

REACTIONS (3)
  - Mood swings [None]
  - Depression suicidal [None]
  - Drug ineffective [None]
